FAERS Safety Report 11381147 (Version 5)
Quarter: 2015Q4

REPORT INFORMATION
  Report Type: Spontaneous
  Country: US (occurrence: US)
  Receive Date: 20150814
  Receipt Date: 20151013
  Transmission Date: 20160304
  Serious: Yes (Death, Hospitalization)
  Sender: FDA-Public Use
  Company Number: US-UNITED THERAPEUTICS-UNT-2015-009780

PATIENT
  Age: 27 Year
  Sex: Female
  Weight: 53.52 kg

DRUGS (3)
  1. LETAIRIS [Concomitant]
     Active Substance: AMBRISENTAN
     Indication: PRODUCT USED FOR UNKNOWN INDICATION
  2. XARELTO [Concomitant]
     Active Substance: RIVAROXABAN
     Indication: PRODUCT USED FOR UNKNOWN INDICATION
  3. REMODULIN [Suspect]
     Active Substance: TREPROSTINIL
     Indication: PULMONARY HYPERTENSION
     Dosage: 0.128 ?G/KG, CONTINUING
     Route: 058
     Dates: start: 20150429

REACTIONS (4)
  - Fluid overload [Unknown]
  - Pulmonary arterial hypertension [Unknown]
  - Post procedural complication [Fatal]
  - Electrolyte imbalance [Unknown]

NARRATIVE: CASE EVENT DATE: 201508
